FAERS Safety Report 16017504 (Version 1)
Quarter: 2019Q1

REPORT INFORMATION
  Report Type: Spontaneous
  Country: AR (occurrence: AR)
  Receive Date: 20190228
  Receipt Date: 20190228
  Transmission Date: 20190418
  Serious: Yes (Other)
  Sender: FDA-Public Use
  Company Number: PHHY2019AR045850

PATIENT
  Age: 73 Year
  Sex: Male

DRUGS (3)
  1. CARBIDOPA,ENTACAPONE,LEVODOPA [Suspect]
     Active Substance: CARBIDOPA\ENTACAPONE\LEVODOPA
     Indication: PARKINSONISM
     Dosage: 25/100/200 MG, QID
     Route: 065
  2. PRAMIPEXOLE. [Concomitant]
     Active Substance: PRAMIPEXOLE
     Indication: PARKINSONISM
     Dosage: 3 MG, QD
     Route: 065
  3. RASAGILINE. [Concomitant]
     Active Substance: RASAGILINE
     Indication: PARKINSONISM
     Dosage: 1 MG, QD
     Route: 065

REACTIONS (2)
  - Concomitant disease aggravated [Recovering/Resolving]
  - Blepharospasm [Recovering/Resolving]
